FAERS Safety Report 6151385-X (Version None)
Quarter: 2009Q2

REPORT INFORMATION
  Report Type: 
  Country: None (occurrence: None)
  Receive Date: 20090408
  Receipt Date: 20090330
  Transmission Date: 20091009
  Serious: Yes (Hospitalization)
  Sender: FDA-Public Use
  Company Number: 2009002762

PATIENT
  Sex: Male

DRUGS (4)
  1. TRISENOX [Suspect]
     Indication: ACUTE PROMYELOCYTIC LEUKAEMIA
     Dosage: INTRAVENOUS
     Route: 042
     Dates: start: 20090304, end: 20090317
  2. ALENDRONATE SODIUM HYDRATE (ALENDRONATE SODIUM) [Concomitant]
  3. SODIUM RABEPRAZOLE (RABEPRAZOLE SODIUM) [Concomitant]
  4. UNKNOWN TUBERCULOSIS DRUG (DRUG FOR TREATMENT OF TUBERCULOSIS) [Concomitant]

REACTIONS (1)
  - PNEUMONIA [None]
